FAERS Safety Report 20131279 (Version 5)
Quarter: 2022Q1

REPORT INFORMATION
  Report Type: Report from Study
  Country: CN (occurrence: None)
  Receive Date: 20211130
  Receipt Date: 20220303
  Transmission Date: 20220423
  Serious: Yes (Death, Hospitalization)
  Sender: FDA-Public Use
  Company Number: CN-ROCHE-2967859

PATIENT
  Age: 65 Year
  Sex: Male
  Weight: 49.5 kg

DRUGS (22)
  1. ATEZOLIZUMAB [Suspect]
     Active Substance: ATEZOLIZUMAB
     Indication: Oesophageal squamous cell carcinoma
     Dosage: THE START DATE OF MOST RECENT DOSE OF ATEZOLIZUMAB PRIOR TO AE AND SAE (SERIOUS ADVERSE EVENT) ONSET
     Route: 041
     Dates: start: 20211022
  2. TIRAGOLUMAB [Suspect]
     Active Substance: TIRAGOLUMAB
     Indication: Oesophageal squamous cell carcinoma
     Dosage: THE START DATE OF MOST RECENT DOSE OF TIRAGOLUMAB PRIOR TO AE AND SAE (SERIOUS ADVERSE EVENT) ONSET:
     Route: 042
     Dates: start: 20211022
  3. PACLITAXEL [Suspect]
     Active Substance: PACLITAXEL
     Indication: Oesophageal squamous cell carcinoma
     Dosage: THE START DATE OF MOST RECENT DOSE OF PACLITAXEL (197 MG) PRIOR TO AE AND SAE (SERIOUS ADVERSE EVENT
     Route: 042
     Dates: start: 20211022
  4. CISPLATIN [Suspect]
     Active Substance: CISPLATIN
     Indication: Oesophageal squamous cell carcinoma
     Dosage: THE START DATE OF MOST RECENT DOSE OF PACLITAXEL (87 MG) PRIOR TO AE AND SAE (SERIOUS ADVERSE EVENT)
     Route: 042
     Dates: start: 20211022
  5. SODIUM CHLORIDE [Concomitant]
     Active Substance: SODIUM CHLORIDE
     Dates: start: 20211019, end: 20211024
  6. SODIUM CHLORIDE [Concomitant]
     Active Substance: SODIUM CHLORIDE
     Dates: start: 20211111, end: 20211114
  7. VITAMIN B6 [Concomitant]
     Active Substance: PYRIDOXINE HYDROCHLORIDE
     Route: 042
     Dates: start: 20211019, end: 20211024
  8. OMEPRAZOLE SODIUM [Concomitant]
     Active Substance: OMEPRAZOLE SODIUM
     Dates: start: 20211019, end: 20211025
  9. DEXTROSE\SODIUM CHLORIDE [Concomitant]
     Active Substance: DEXTROSE\SODIUM CHLORIDE
     Dates: start: 20211019, end: 20211025
  10. CIMETIDINE [Concomitant]
     Active Substance: CIMETIDINE
     Dates: start: 20211022, end: 20211025
  11. ONDANSETRON HYDROCHLORIDE [Concomitant]
     Active Substance: ONDANSETRON HYDROCHLORIDE
     Dates: start: 20211022, end: 20211025
  12. ONDANSETRON HYDROCHLORIDE [Concomitant]
     Active Substance: ONDANSETRON HYDROCHLORIDE
     Dates: start: 20211112, end: 20211115
  13. TAGAMET [Concomitant]
     Active Substance: CIMETIDINE
     Dates: start: 20211022, end: 20211025
  14. TAGAMET [Concomitant]
     Active Substance: CIMETIDINE
     Dates: start: 20211111, end: 20211115
  15. DEXAMETHASONE ACETATE [Concomitant]
     Active Substance: DEXAMETHASONE ACETATE
     Route: 048
     Dates: start: 20211111, end: 20211111
  16. DEXAMETHASONE ACETATE [Concomitant]
     Active Substance: DEXAMETHASONE ACETATE
     Route: 048
     Dates: start: 20211112, end: 20211112
  17. DIPHENHYDRAMINE HYDROCHLORIDE [Concomitant]
     Active Substance: DIPHENHYDRAMINE HYDROCHLORIDE
     Dates: start: 20211112, end: 20211112
  18. DEXTROSE [Concomitant]
     Active Substance: DEXTROSE
     Dates: start: 20211112, end: 20211115
  19. DEXAMETHASONE SODIUM PHOSPHATE [Concomitant]
     Active Substance: DEXAMETHASONE SODIUM PHOSPHATE
     Route: 042
     Dates: start: 20211113, end: 20211113
  20. MEGESTROL ACETATE [Concomitant]
     Active Substance: MEGESTROL ACETATE
     Dates: start: 20211111, end: 20211115
  21. APREPITANT [Concomitant]
     Active Substance: APREPITANT
     Dates: start: 20211112, end: 20211115
  22. SODIUM BICARBONATE [Concomitant]
     Active Substance: SODIUM BICARBONATE
     Dates: start: 20211112, end: 20211115

REACTIONS (1)
  - Gastrointestinal haemorrhage [Fatal]

NARRATIVE: CASE EVENT DATE: 20211123
